FAERS Safety Report 4649437-6 (Version None)
Quarter: 2005Q2

REPORT INFORMATION
  Report Type: 
  Country: None (occurrence: None)
  Receive Date: 20050502
  Receipt Date: 20050421
  Transmission Date: 20051028
  Serious: Yes (Disabling)
  Sender: FDA-Public Use
  Company Number: 200513582GDDC

PATIENT
  Age: 69 Year
  Sex: Male
  Weight: 77.3 kg

DRUGS (4)
  1. TAXOTERE [Suspect]
     Indication: PROSTATE CANCER
     Route: 042
     Dates: start: 20041202, end: 20050203
  2. BUSERELIN [Suspect]
     Indication: PROSTATE CANCER
  3. RADIOTHERAPY [Suspect]
     Indication: PROSTATE CANCER
     Dosage: DOSE: 2520 CGY IN 14 FRACTIONS
  4. IMOVANE [Concomitant]
     Indication: INSOMNIA
     Route: 048
     Dates: start: 20050202

REACTIONS (4)
  - BLADDER SPASM [None]
  - POLLAKIURIA [None]
  - URINARY RETENTION [None]
  - URINARY TRACT OBSTRUCTION [None]
